FAERS Safety Report 9501132 (Version 2)
Quarter: 2013Q3

REPORT INFORMATION
  Report Type: Spontaneous
  Country: US (occurrence: US)
  Receive Date: 20130905
  Receipt Date: 20130905
  Transmission Date: 20140515
  Serious: Yes (Death)
  Sender: FDA-Public Use
  Company Number: US-INCYTE CORPORATION-2013IN001474

PATIENT
  Age: 72 Year
  Sex: Female
  Weight: 61.3 kg

DRUGS (2)
  1. JAKAFI [Suspect]
     Indication: MYELOFIBROSIS
     Dosage: 20 MG, BID
     Route: 048
     Dates: start: 201201, end: 201305
  2. VIDAZA [Concomitant]
     Dosage: 7 DAYS ONCE A MONTH

REACTIONS (1)
  - Acute myeloid leukaemia [Fatal]
